FAERS Safety Report 19193913 (Version 1)
Quarter: 2021Q2

REPORT INFORMATION
  Report Type: Spontaneous
  Country: US (occurrence: US)
  Receive Date: 20210428
  Receipt Date: 20210428
  Transmission Date: 20210717
  Serious: Yes (Hospitalization, Disabling, Other)
  Sender: FDA-Public Use
  Company Number: None

PATIENT
  Age: 59 Year
  Sex: Female

DRUGS (1)
  1. BRIGHT EYES [HERBALS] [Suspect]
     Active Substance: HERBALS
     Indication: OCULAR HYPERAEMIA
     Route: 047
     Dates: start: 20210401, end: 20210407

REACTIONS (3)
  - Pseudomonas test positive [None]
  - Open globe injury [None]
  - Blindness unilateral [None]

NARRATIVE: CASE EVENT DATE: 20210407
